FAERS Safety Report 8458432-0 (Version None)
Quarter: 2012Q2

REPORT INFORMATION
  Report Type: 
  Country: None (occurrence: None)
  Receive Date: 20120622
  Receipt Date: 20120613
  Transmission Date: 20120825
  Serious: Yes (Other)
  Sender: FDA-Public Use
  Company Number: US-BRISTOL-MYERS SQUIBB COMPANY-16682049

PATIENT
  Age: 27 Year
  Sex: Female
  Weight: 102 kg

DRUGS (1)
  1. IPILIMUMAB [Suspect]
     Indication: MALIGNANT MELANOMA
     Dosage: LAST DOSE-07-NOV-2011; CYCLE 28-NOV-2011 (HELD FOR 3 DAYS).
     Route: 042
     Dates: start: 20111107, end: 20120126

REACTIONS (2)
  - VOMITING [None]
  - DEHYDRATION [None]
